FAERS Safety Report 6794700-6 (Version None)
Quarter: 2010Q2

REPORT INFORMATION
  Report Type: 
  Country: None (occurrence: None)
  Receive Date: 20100625
  Receipt Date: 20100615
  Transmission Date: 20101027
  Serious: Yes (Death)
  Sender: FDA-Public Use
  Company Number: JP-PFIZER INC-2010072452

PATIENT
  Age: 77 Year
  Sex: Male

DRUGS (12)
  1. CHAMPIX [Suspect]
     Indication: NICOTINE DEPENDENCE
     Dosage: 0.5 MG, 1X/DAY
     Route: 048
     Dates: start: 20100526, end: 20100528
  2. CHAMPIX [Suspect]
     Dosage: 0.5 MG, 2X/DAY
     Route: 048
     Dates: start: 20100529, end: 20100601
  3. CHAMPIX [Suspect]
     Dosage: 1 MG, 2X/DAY
     Route: 048
     Dates: start: 20100602
  4. MAGNESIUM OXIDE [Suspect]
     Indication: CONSTIPATION
     Dosage: 300 MG, 2X/DAY
     Route: 048
     Dates: start: 20100511
  5. CLARITH [Concomitant]
     Indication: BRONCHITIS
     Dosage: 200 G, 2X/DAY
     Route: 048
     Dates: start: 20051213
  6. MEDICON [Concomitant]
     Indication: BRONCHITIS
     Dosage: 15 G, 2X/DAY
     Dates: start: 20051213
  7. BLOPRESS [Concomitant]
     Indication: HYPERTENSION
     Dosage: 4 MG, 1X/DAY
     Route: 048
     Dates: start: 20030808
  8. ASPIRIN [Concomitant]
     Indication: CEREBROVASCULAR DISORDER
     Dosage: 100 G, 1X/DAY
     Route: 048
     Dates: start: 20030808
  9. MENESIT [Concomitant]
     Indication: PARKINSON'S DISEASE
     Dosage: 100 MG, 1X/DAY
     Route: 048
     Dates: start: 20091117
  10. ROHYPNOL [Concomitant]
     Indication: INSOMNIA
     Dosage: 2 G, 1X/DAY
     Route: 048
     Dates: start: 20080930
  11. SENIRAN [Concomitant]
     Indication: INSOMNIA
     Dosage: 5 G, 1X/DAY
     Route: 048
     Dates: start: 20080115
  12. MUCOSOLVAN [Concomitant]
     Indication: BRONCHITIS
     Dosage: 15 MG, UNK
     Dates: start: 20051213

REACTIONS (1)
  - SUDDEN DEATH [None]
